FAERS Safety Report 4954242-7 (Version None)
Quarter: 2006Q1

REPORT INFORMATION
  Report Type: 
  Country: None (occurrence: None)
  Receive Date: 20060327
  Receipt Date: 20060316
  Transmission Date: 20060701
  Serious: Yes (Death, Hospitalization)
  Sender: FDA-Public Use
  Company Number: PH-MERCK-0603USA03607

PATIENT
  Age: 7 Year
  Sex: Female

DRUGS (4)
  1. ELSPAR [Suspect]
     Indication: ACUTE LYMPHOCYTIC LEUKAEMIA RECURRENT
     Route: 058
  2. VINCRISTINE SULFATE [Suspect]
     Route: 065
  3. EPIRUBICIN HYDROCHLORIDE [Suspect]
     Route: 065
  4. ANTINEOPLASTIC (UNSPECIFIED) [Suspect]
     Route: 065

REACTIONS (3)
  - CEREBRAL INFARCTION [None]
  - COMA [None]
  - GRAND MAL CONVULSION [None]
